FAERS Safety Report 10175059 (Version 1)
Quarter: 2014Q2

REPORT INFORMATION
  Report Type: Spontaneous
  Country: BR (occurrence: BR)
  Receive Date: 20140515
  Receipt Date: 20140515
  Transmission Date: 20141212
  Serious: Yes (Other)
  Sender: FDA-Public Use
  Company Number: BR-009507513-1405BRA005739

PATIENT
  Age: 28 Year
  Sex: Female
  Weight: 59 kg

DRUGS (2)
  1. MICRODIOL [Suspect]
     Indication: CONTRACEPTION
     Dosage: 1 DF, QD
     Route: 048
     Dates: start: 2001
  2. ANTIMICROBIAL (UNSPECIFIED) [Concomitant]
     Dosage: UNK

REACTIONS (2)
  - Cholecystectomy [Unknown]
  - Abnormal withdrawal bleeding [Not Recovered/Not Resolved]
